FAERS Safety Report 10147005 (Version 1)
Quarter: 2014Q2

REPORT INFORMATION
  Report Type: Spontaneous
  Country: US (occurrence: None)
  Receive Date: 20140430
  Receipt Date: 20140430
  Transmission Date: 20141212
  Serious: Yes (Hospitalization)
  Sender: FDA-Public Use
  Company Number: None

PATIENT
  Age: 30 Year
  Sex: Female

DRUGS (10)
  1. PACLITAXEL [Suspect]
     Indication: NEOPLASM MALIGNANT
     Dosage: 330 MG ONCE IV
     Route: 042
     Dates: start: 20130704, end: 20130704
  2. DOCUSATE [Concomitant]
  3. DEXAMETHASONE [Concomitant]
  4. OXYCODONE [Concomitant]
  5. PHYTONADIONE [Concomitant]
  6. FAMOTIDINE [Concomitant]
  7. LORAZEPAM [Concomitant]
  8. DIPHENHYDRAMINE [Concomitant]
  9. FOSAPREPITANT [Concomitant]
  10. ONDANSETRON [Concomitant]

REACTIONS (3)
  - Hypoxia [None]
  - Cyanosis [None]
  - Anaphylactic reaction [None]
